FAERS Safety Report 6321597-0 (Version None)
Quarter: 2009Q3

REPORT INFORMATION
  Report Type: 
  Country: None (occurrence: None)
  Receive Date: 20090824
  Receipt Date: 20090812
  Transmission Date: 20100115
  Serious: Yes (Other)
  Sender: FDA-Public Use
  Company Number: CA-JNJFOC-20090804073

PATIENT
  Sex: Female
  Weight: 57 kg

DRUGS (2)
  1. REMICADE [Suspect]
     Dosage: 2ND INFUSION (0,2 AND 6 WEEKS AND THEN EVERY 8 WEEKS)
     Route: 042
  2. REMICADE [Suspect]
     Indication: CROHN'S DISEASE
     Dosage: IST INFUSION (0,2 6 WEEKS AND THEN EVERY 8 WEEKS)
     Route: 042

REACTIONS (4)
  - DYSGEUSIA [None]
  - HEADACHE [None]
  - HYPOAESTHESIA [None]
  - NAUSEA [None]
